FAERS Safety Report 18923711 (Version 2)
Quarter: 2021Q1

REPORT INFORMATION
  Report Type: Report from Study
  Country: ES (occurrence: ES)
  Receive Date: 20210222
  Receipt Date: 20210315
  Transmission Date: 20210420
  Serious: Yes (Hospitalization, Other)
  Sender: FDA-Public Use
  Company Number: ES-UCBSA-2021004030

PATIENT
  Age: 38 Year
  Sex: Female

DRUGS (2)
  1. CERTOLIZUMAB PEGOL AVA [Suspect]
     Active Substance: CERTOLIZUMAB PEGOL
     Indication: ANKYLOSING SPONDYLITIS
     Dosage: 200 MILLIGRAM, EV 2 WEEKS(QOW)
     Route: 030
     Dates: start: 20200917, end: 20201214
  2. CHOLECALCIFEROL [Concomitant]
     Active Substance: CHOLECALCIFEROL
     Indication: VITAMIN D DEFICIENCY
     Dosage: 0.266 MILLIGRAM, MONTHLY (QM)
     Route: 048
     Dates: start: 20171030

REACTIONS (2)
  - Carcinoid tumour pulmonary [Recovering/Resolving]
  - Product use issue [Unknown]

NARRATIVE: CASE EVENT DATE: 20200917
